FAERS Safety Report 4784358-X (Version None)
Quarter: 2005Q3

REPORT INFORMATION
  Report Type: 
  Country: None (occurrence: None)
  Receive Date: 20050929
  Receipt Date: 20050929
  Transmission Date: 20060218
  Serious: Yes (Hospitalization)
  Sender: FDA-Public Use
  Company Number: None

PATIENT
  Age: 57 Year
  Sex: Male
  Weight: 109.3 kg

DRUGS (11)
  1. LITHIUM [Suspect]
     Indication: BIPOLAR DISORDER
     Dosage: 600MG,300MG BI, ORAL
     Route: 048
  2. DIAZEPAM [Concomitant]
  3. GATIFLOXACIN [Concomitant]
  4. INDOMETHACIN [Concomitant]
  5. PAROXETINE HCL [Concomitant]
  6. ZIPRASIDONE HCL [Concomitant]
  7. SIMVASTATIN [Concomitant]
  8. ATENOLOL [Concomitant]
  9. OXYBUTYNIN CHLORIDE [Concomitant]
  10. CLOBETASOL PROPIONATE [Concomitant]
  11. SILVER SULFADIAZINE [Concomitant]

REACTIONS (1)
  - DRUG LEVEL ABOVE THERAPEUTIC [None]
